FAERS Safety Report 14952267 (Version 4)
Quarter: 2018Q3

REPORT INFORMATION
  Report Type: Spontaneous
  Country: US (occurrence: US)
  Receive Date: 20180530
  Receipt Date: 20180711
  Transmission Date: 20181010
  Serious: No
  Sender: FDA-Public Use
  Company Number: US-PFIZER INC-2018212774

PATIENT
  Age: 84 Year
  Sex: Female
  Weight: 86 kg

DRUGS (8)
  1. METHYLPREDNISOLONE. [Suspect]
     Active Substance: METHYLPREDNISOLONE
     Indication: SCIATIC NERVE INJURY
     Dosage: 4 MG (FREQUENCY REDUCES EVERY DAY)
     Route: 048
     Dates: start: 20180522
  2. METHIMAZOLE. [Concomitant]
     Active Substance: METHIMAZOLE
     Indication: BASEDOW^S DISEASE
     Dosage: 5 MG, DAILY
  3. DETROL [Concomitant]
     Active Substance: TOLTERODINE TARTRATE
     Indication: BLADDER DISORDER
     Dosage: 2 MG, DAILY
     Route: 048
  4. CARVEDILOL. [Concomitant]
     Active Substance: CARVEDILOL
     Indication: HYPERTENSION
     Dosage: 25 MG, 2X/DAY
     Route: 048
     Dates: start: 2012
  5. SPIRONOLACTONE. [Concomitant]
     Active Substance: SPIRONOLACTONE
     Indication: HYPERTENSION
     Dosage: 12.5 MG, DAILY (TAKES 1/2 TABLET)
     Route: 048
  6. CLOPIDOGREL [Concomitant]
     Active Substance: CLOPIDOGREL BISULFATE
     Indication: ARTERIAL DISORDER
     Dosage: 75 MG, 1X/DAY (ONE A DAY)
     Route: 048
     Dates: start: 2013
  7. ESOMEPRAZOLE [Concomitant]
     Active Substance: ESOMEPRAZOLE
     Indication: BARRETT^S OESOPHAGUS
     Dosage: 40 MG, 1X/DAY
     Route: 048
  8. LOSARTAN POTASSIUM. [Concomitant]
     Active Substance: LOSARTAN POTASSIUM
     Indication: HYPERTENSION
     Dosage: 100 MG, DAILY
     Route: 048

REACTIONS (3)
  - Product use in unapproved indication [Unknown]
  - Drug dose omission [Unknown]
  - Dysgeusia [Unknown]

NARRATIVE: CASE EVENT DATE: 20180522
